FAERS Safety Report 7396103-2 (Version None)
Quarter: 2011Q2

REPORT INFORMATION
  Report Type: 
  Country: None (occurrence: None)
  Receive Date: 20110406
  Receipt Date: 20090601
  Transmission Date: 20111010
  Serious: Yes (Hospitalization, Other)
  Sender: FDA-Public Use
  Company Number: US-BAYER-200922314NA

PATIENT
  Sex: Male
  Weight: 107 kg

DRUGS (24)
  1. DIGOXIN [Concomitant]
     Dosage: UNK
     Dates: start: 20050701
  2. ACETYLSALICYLIC ACID SRT [Concomitant]
  3. NITROGLYCERIN [Concomitant]
     Route: 042
  4. MILRINONE [Concomitant]
     Dosage: UNK
     Dates: start: 20050701
  5. PEPCID [Concomitant]
  6. LACTATED RINGER'S [Concomitant]
     Dosage: 1100 ML, DURING SURGERY
  7. TRASYLOL [Suspect]
     Indication: MITRAL VALVE REPLACEMENT
  8. TRASYLOL [Suspect]
     Indication: CORONARY ARTERY BYPASS
     Dosage: 200 ML, LOADING DOSE
     Route: 042
     Dates: start: 20050708, end: 20050708
  9. CEFTIN [Concomitant]
  10. FIBRINKLEBER [Concomitant]
     Route: 061
  11. TRASYLOL [Suspect]
     Indication: AORTIC VALVE REPLACEMENT
     Dosage: 25 ML/H INFUSION
     Route: 042
     Dates: start: 20050708, end: 20050708
  12. BUMEX [Concomitant]
     Dosage: 0.5 DAILY
     Dates: start: 20050701
  13. HESPAN IN EXCEL PLASTIC CONTAINER [Concomitant]
     Dosage: 500 ML, UNK
  14. POLYMYXIN [Concomitant]
     Dosage: IRRIGATION DURING SURGERY
  15. LEVOPHED [Concomitant]
     Dosage: UNK
     Dates: start: 20050701
  16. FAMOTIDINE [Concomitant]
     Dosage: UNK
     Dates: start: 20050701
  17. HEPARIN SODIUM [Concomitant]
     Dosage: 10000 U, IN 1000 ML NORMAL SALINE
     Route: 042
  18. ZINACEF [Concomitant]
     Dosage: UNK
     Dates: start: 20050701
  19. VANCOMYCIN [Concomitant]
  20. INSULIN [Concomitant]
     Dosage: UNK
     Dates: start: 20050701
  21. PROPRANOLOL [Concomitant]
     Dosage: UNK
     Dates: start: 20050701
  22. ZINACEF [Concomitant]
     Dosage: 1.5 G, DURING SURGERY
  23. VERSED [Concomitant]
     Route: 042
  24. MANNITOL [Concomitant]
     Dosage: 50 UNK, UNK

REACTIONS (7)
  - FEAR [None]
  - RENAL FAILURE [None]
  - PAIN [None]
  - STRESS [None]
  - RENAL INJURY [None]
  - EMOTIONAL DISTRESS [None]
  - ANXIETY [None]
